FAERS Safety Report 10280896 (Version 1)
Quarter: 2014Q3

REPORT INFORMATION
  Report Type: Spontaneous
  Country: GB (occurrence: GB)
  Receive Date: 20140707
  Receipt Date: 20140707
  Transmission Date: 20150326
  Serious: Yes (Hospitalization)
  Sender: FDA-Public Use
  Company Number: GB-BRISTOL-MYERS SQUIBB COMPANY-21120845

PATIENT
  Age: 52 Year
  Sex: Female

DRUGS (1)
  1. YERVOY [Suspect]
     Active Substance: IPILIMUMAB
     Indication: METASTATIC MALIGNANT MELANOMA
     Dates: end: 20140613

REACTIONS (8)
  - Peripheral swelling [Unknown]
  - Headache [Unknown]
  - Hyponatraemia [Unknown]
  - Vision blurred [Unknown]
  - Hallucination [Unknown]
  - Vomiting [Unknown]
  - Swelling face [Unknown]
  - Hypothalamo-pituitary disorder [Unknown]

NARRATIVE: CASE EVENT DATE: 20140616
